FAERS Safety Report 9064735 (Version 1)
Quarter: 2013Q1

REPORT INFORMATION
  Report Type: Spontaneous
  Country: TR (occurrence: TR)
  Receive Date: 20130213
  Receipt Date: 20130213
  Transmission Date: 20140127
  Serious: Yes (Other)
  Sender: FDA-Public Use
  Company Number: PHHY2012TR074492

PATIENT
  Age: 46 Year
  Sex: Female

DRUGS (1)
  1. TASIGNA [Suspect]
     Indication: CHRONIC MYELOID LEUKAEMIA
     Dosage: 600 MG, DAILY
     Route: 048
     Dates: start: 200907

REACTIONS (8)
  - Urinary tract infection [Not Recovered/Not Resolved]
  - Kidney infection [Not Recovered/Not Resolved]
  - Cyst [Not Recovered/Not Resolved]
  - Ulcer [Not Recovered/Not Resolved]
  - Groin pain [Recovered/Resolved]
  - Overdose [Unknown]
  - Memory impairment [Not Recovered/Not Resolved]
  - Decreased appetite [Unknown]
